FAERS Safety Report 8895647 (Version 2)
Quarter: 2012Q4

REPORT INFORMATION
  Report Type: 
  Country: US (occurrence: US)
  Receive Date: 20121108
  Receipt Date: 20121123
  Transmission Date: 20130627
  Serious: Yes (Hospitalization, Other)
  Sender: FDA-Public Use
  Company Number: US-PFIZER INC-2012278143

PATIENT
  Age: 57 Year
  Sex: Female
  Weight: 79.4 kg

DRUGS (4)
  1. GABAPENTIN [Suspect]
     Indication: ILL-DEFINED DISORDER
     Dosage: 600 mg, 2x/day
     Route: 048
     Dates: start: 2010, end: 20121020
  2. LASIX [Concomitant]
     Dosage: UNK
  3. COREG [Concomitant]
     Indication: HYPERTENSION
     Dosage: UNK
  4. GLIPIZIDE [Concomitant]
     Indication: DIABETES
     Dosage: UNK

REACTIONS (8)
  - Cardiac enzymes increased [Unknown]
  - Chest pain [Unknown]
  - Coronary artery disease [Unknown]
  - Drug ineffective [Unknown]
  - Thinking abnormal [Unknown]
  - Mental disorder [Unknown]
  - Insomnia [Unknown]
  - Pain in extremity [Unknown]
